FAERS Safety Report 17112124 (Version 6)
Quarter: 2020Q4

REPORT INFORMATION
  Report Type: Report from Study
  Country: US (occurrence: US)
  Receive Date: 20191204
  Receipt Date: 20201124
  Transmission Date: 20210113
  Serious: Yes (Hospitalization, Other)
  Sender: FDA-Public Use
  Company Number: US-ROCHE-2348214

PATIENT
  Age: 68 Year
  Sex: Female
  Weight: 53.5 kg

DRUGS (3)
  1. ATEZOLIZUMAB. [Suspect]
     Active Substance: ATEZOLIZUMAB
     Indication: FALLOPIAN TUBE CANCER
     Dosage: MOST RECENT DOSE ON 30/MAY/2019.?CYCLE 28 DAYS; OVER 1 HOUR ON DAYS 1 AND 15?TOTAL DOSE ADMINISTERED
     Route: 042
     Dates: start: 20190110
  2. BEVACIZUMAB. [Suspect]
     Active Substance: BEVACIZUMAB
     Indication: FALLOPIAN TUBE CANCER
     Dosage: MOST RECENT DOSE ON 30/MAY/2019.?CYCLE 28 DAYS;10 MG/KG IV OVER 90 MINUTES ON DAYS 1 AND 15?TOTAL DO
     Route: 042
     Dates: start: 20190110
  3. LIPOSOMAL DOXORUBICIN [Suspect]
     Active Substance: DOXORUBICIN HYDROCHLORIDE
     Indication: FALLOPIAN TUBE CANCER
     Dosage: MOST RECENT DOSE ON 30/MAY/2019.?CYCLE 28 DAYS; 40 MG/M2 IV OVER 1 HOUR ON DAY 1?TOTAL DOSE ADMINIST
     Route: 042
     Dates: start: 20190110

REACTIONS (8)
  - Decreased appetite [Recovered/Resolved]
  - Hyperthyroidism [Recovered/Resolved]
  - Confusional state [Recovered/Resolved]
  - Syncope [Recovered/Resolved]
  - Oesophagitis [Recovered/Resolved]
  - Memory impairment [Recovered/Resolved]
  - Dehydration [Recovered/Resolved]
  - Rash maculo-papular [Recovered/Resolved]

NARRATIVE: CASE EVENT DATE: 20190324
